FAERS Safety Report 8556000-3 (Version None)
Quarter: 2012Q3

REPORT INFORMATION
  Report Type: 
  Country: None (occurrence: None)
  Receive Date: 20120719
  Receipt Date: 20110912
  Transmission Date: 20120928
  Serious: Yes (Life-Threatening, Hospitalization)
  Sender: FDA-Public Use
  Company Number: GGEL20110901349

PATIENT
  Age: 51 Year
  Sex: Male

DRUGS (2)
  1. METFORMIN HCL [Suspect]
     Indication: PAIN
     Dosage: 1 IN 6 HR
  2. OXYCODONE-ACETAMINOPHEN (OXYCODONE, ACETAMINOPHEN) (OXYCODONE, ACETAMI [Concomitant]

REACTIONS (7)
  - BLOOD PRESSURE DECREASED [None]
  - ACIDOSIS [None]
  - BLOOD LACTIC ACID INCREASED [None]
  - BLOOD GLUCOSE DECREASED [None]
  - UNRESPONSIVE TO STIMULI [None]
  - BLOOD CREATININE INCREASED [None]
  - BLOOD BICARBONATE DECREASED [None]
